FAERS Safety Report 4648022-X (Version None)
Quarter: 2005Q2

REPORT INFORMATION
  Report Type: 
  Country: None (occurrence: None)
  Receive Date: 20050331
  Receipt Date: 20050117
  Transmission Date: 20051028
  Serious: No
  Sender: FDA-Public Use
  Company Number: 05P-163-0286894-00

PATIENT
  Age: 69 Year
  Sex: Female
  Weight: 89.8122 kg

DRUGS (8)
  1. HUMIRA [Suspect]
     Indication: RHEUMATOID ARTHRITIS
     Dosage: 40 MG, 1 IN 1 D, SUBCUTANEOUS
     Route: 058
     Dates: start: 20030101, end: 20041101
  2. FLUOXETINE HCL [Concomitant]
  3. LEVOTHYROXINE SODIUM [Concomitant]
  4. DARVOCET [Concomitant]
  5. DYAZIDE [Concomitant]
  6. CYCLOBENZAPRINE HYDROCHLORIDE [Concomitant]
  7. FOLIC ACID [Concomitant]
  8. METHOTREXATE SODIUM [Concomitant]

REACTIONS (3)
  - HYPERSENSITIVITY [None]
  - PRODUCTIVE COUGH [None]
  - UPPER RESPIRATORY TRACT INFECTION [None]
